FAERS Safety Report 10228789 (Version 2)
Quarter: 2014Q2

REPORT INFORMATION
  Report Type: Report from Study
  Country: US (occurrence: US)
  Receive Date: 20140610
  Receipt Date: 20140626
  Transmission Date: 20141212
  Serious: Yes (Hospitalization)
  Sender: FDA-Public Use
  Company Number: US-ACTELION-A-US2014-099728

PATIENT
  Age: 10 Year
  Sex: Female

DRUGS (2)
  1. TRACLEER [Suspect]
     Indication: PULMONARY HYPERTENSION
     Dosage: 62.5 MG, UNK
     Route: 048
     Dates: start: 20130905
  2. ADCIRCA [Concomitant]

REACTIONS (1)
  - Ingrowing nail [Recovering/Resolving]
